FAERS Safety Report 8553624-4 (Version None)
Quarter: 2012Q3

REPORT INFORMATION
  Report Type: 
  Country: None (occurrence: None)
  Receive Date: 20120731
  Receipt Date: 20120726
  Transmission Date: 20120928
  Serious: Yes (Other)
  Sender: FDA-Public Use
  Company Number: PHHY2012US064518

PATIENT
  Age: 65 Year
  Sex: Female

DRUGS (1)
  1. CARBIDOPA + LEVODOPA [Suspect]
     Indication: PARKINSON'S DISEASE
     Dosage: 1.5 DF, TID

REACTIONS (5)
  - BURNING MOUTH SYNDROME [None]
  - GLOSSODYNIA [None]
  - NAUSEA [None]
  - DYSGEUSIA [None]
  - DYSAESTHESIA [None]
